FAERS Safety Report 9699070 (Version 1)
Quarter: 2013Q4

REPORT INFORMATION
  Report Type: Report from Study
  Country: MX (occurrence: MX)
  Receive Date: 20131120
  Receipt Date: 20131120
  Transmission Date: 20140711
  Serious: Yes (Other)
  Sender: FDA-Public Use
  Company Number: MX-ROCHE-1305372

PATIENT
  Age: 44 Year
  Sex: Female
  Weight: 72 kg

DRUGS (2)
  1. PEG-INTERFERON ALFA 2A [Suspect]
     Indication: HEPATITIS C
     Route: 065
  2. RIBAVIRIN [Suspect]
     Indication: HEPATITIS C
     Route: 065

REACTIONS (1)
  - Pancytopenia [Unknown]
